FAERS Safety Report 21464550 (Version 2)
Quarter: 2022Q4

REPORT INFORMATION
  Report Type: Report from Study
  Country: US (occurrence: US)
  Receive Date: 20221017
  Receipt Date: 20221026
  Transmission Date: 20230113
  Serious: No
  Sender: FDA-Public Use
  Company Number: US-ABBVIE-4137584

PATIENT
  Sex: Male

DRUGS (1)
  1. VENCLEXTA [Suspect]
     Active Substance: VENETOCLAX
     Indication: Acute myeloid leukaemia
     Dosage: TOOK 1 TABLET BY MOUTH ONCE DAILY WITH FOOD AND A FULL GLASS OF WATER.?FORM STRENGTH: 100 MILLIGRAM
     Route: 048

REACTIONS (3)
  - Feeling abnormal [Recovered/Resolved]
  - Fatigue [Unknown]
  - Malaise [Unknown]
